FAERS Safety Report 15885389 (Version 2)
Quarter: 2019Q1

REPORT INFORMATION
  Report Type: Spontaneous
  Country: GB (occurrence: GB)
  Receive Date: 20190129
  Receipt Date: 20190129
  Transmission Date: 20190417
  Serious: Yes (Death)
  Sender: FDA-Public Use
  Company Number: PHHY2019GB019801

PATIENT
  Age: 63 Year

DRUGS (4)
  1. CYCLOPHOSPHAMIDE. [Suspect]
     Active Substance: CYCLOPHOSPHAMIDE
     Dosage: 500 MG, UNK (4 DOSES, ONE EACH IN WEEK 4, 6, 8, AND 10)
     Route: 042
  2. CYCLOPHOSPHAMIDE. [Suspect]
     Active Substance: CYCLOPHOSPHAMIDE
     Indication: RENAL VASCULITIS
     Dosage: 10 MG/KG, UNK
     Route: 042
  3. PREDNISOLONE. [Suspect]
     Active Substance: PREDNISOLONE
     Indication: RENAL VASCULITIS
     Dosage: 60 MG, UNK
     Route: 048
  4. RITUXIMAB. [Suspect]
     Active Substance: RITUXIMAB
     Indication: RENAL VASCULITIS
     Dosage: 1 G, UNK (2 DOSES ONE EACH AT DAY 0 AND WEEK 2)
     Route: 042

REACTIONS (1)
  - Lung neoplasm malignant [Fatal]
